FAERS Safety Report 20945322 (Version 1)
Quarter: 2022Q2

REPORT INFORMATION
  Report Type: Spontaneous
  Country: GB (occurrence: GB)
  Receive Date: 20220610
  Receipt Date: 20220610
  Transmission Date: 20220721
  Serious: Yes (Other)
  Sender: FDA-Public Use
  Company Number: GB-NOVARTISPH-NVSC2022GB131915

PATIENT
  Age: 26 Year
  Sex: Female
  Weight: 70 kg

DRUGS (13)
  1. BISOPROLOL [Suspect]
     Active Substance: BISOPROLOL
     Indication: Shone complex
     Dosage: 2.5 MG
     Route: 048
  2. FUROSEMIDE [Suspect]
     Active Substance: FUROSEMIDE
     Indication: Shone complex
     Dosage: 20 MG
     Route: 042
  3. DIAMORPHINE [Suspect]
     Active Substance: DIAMORPHINE
     Indication: Postoperative analgesia
     Dosage: 5 MG
     Route: 042
  4. DIAMORPHINE [Suspect]
     Active Substance: DIAMORPHINE
     Dosage: 300 UG
     Route: 050
  5. POTASSIUM CHLORIDE [Suspect]
     Active Substance: POTASSIUM CHLORIDE
     Indication: Mineral supplementation
     Dosage: UNK
     Route: 048
  6. MAGNESIUM [Suspect]
     Active Substance: MAGNESIUM
     Indication: Mineral supplementation
     Dosage: UNK
     Route: 042
  7. TINZAPARIN [Suspect]
     Active Substance: TINZAPARIN
     Indication: Thrombosis prophylaxis
     Dosage: 4500 IU
     Route: 058
  8. BUPIVACAINE [Suspect]
     Active Substance: BUPIVACAINE
     Indication: Product used for unknown indication
     Dosage: 5 ML OF 0.1 PERCENT (TEST DOSE)
     Route: 065
  9. BUPIVACAINE [Suspect]
     Active Substance: BUPIVACAINE
     Dosage: 7.5 MG (INJECTION AT L4?5 INTERSPACE)
     Route: 050
  10. CALCIUM CHLORIDE\POTASSIUM CHLORIDE\SODIUM CHLORIDE\SODIUM LACTATE [Suspect]
     Active Substance: CALCIUM CHLORIDE\POTASSIUM CHLORIDE\SODIUM CHLORIDE\SODIUM LACTATE
     Indication: Product used for unknown indication
     Dosage: 500 ML
     Route: 065
  11. PHENYLEPHRINE [Suspect]
     Active Substance: PHENYLEPHRINE HYDROCHLORIDE
     Indication: Blood pressure measurement
     Dosage: 100 MCG/ML AT THE RATE OF 30 ML/H
     Route: 041
  12. ROPIVACAINE [Suspect]
     Active Substance: ROPIVACAINE
     Indication: Product used for unknown indication
     Dosage: 5 ML
     Route: 065
  13. OXYTOCIN [Suspect]
     Active Substance: OXYTOCIN
     Indication: Prophylaxis
     Dosage: 5 IU
     Route: 042

REACTIONS (3)
  - Premature delivery [Unknown]
  - Maternal exposure during pregnancy [Unknown]
  - Product use in unapproved indication [Unknown]
